FAERS Safety Report 10569952 (Version 1)
Quarter: 2014Q4

REPORT INFORMATION
  Report Type: Spontaneous
  Country: US (occurrence: None)
  Receive Date: 20141105
  Receipt Date: 20141105
  Transmission Date: 20150529
  Serious: Yes (Hospitalization, Other)
  Sender: FDA-Public Use
  Company Number: DAV-AE-MTX-14-56

PATIENT
  Age: 17 Year
  Sex: Male

DRUGS (4)
  1. MERCAPTOPURINE (6-MP) [Concomitant]
  2. VINCRISTINE [Concomitant]
     Active Substance: VINCRISTINE
  3. METHOTREXATE [Suspect]
     Active Substance: METHOTREXATE
     Indication: B PRECURSOR TYPE ACUTE LEUKAEMIA
     Dosage: HIGH DOSE
  4. FOLINIC ACID (LEUCOVORIN) [Concomitant]

REACTIONS (4)
  - Splenic vein thrombosis [None]
  - Pancreatitis [None]
  - Failure to thrive [None]
  - Necrosis [None]
